FAERS Safety Report 19321930 (Version 1)
Quarter: 2021Q2

REPORT INFORMATION
  Report Type: Spontaneous
  Country: LB (occurrence: LB)
  Receive Date: 20210528
  Receipt Date: 20210528
  Transmission Date: 20210717
  Serious: Yes (Other)
  Sender: FDA-Public Use
  Company Number: LB-JNJFOC-20210545505

PATIENT
  Age: 5 Decade
  Sex: Male

DRUGS (1)
  1. XARELTO [Suspect]
     Active Substance: RIVAROXABAN
     Indication: THROMBOSIS PROPHYLAXIS
     Dosage: 15 MG
     Route: 048

REACTIONS (4)
  - Blood count abnormal [Unknown]
  - Haemorrhagic diathesis [Unknown]
  - Purpura [Unknown]
  - Viral infection [Unknown]
